FAERS Safety Report 6259005-0 (Version None)
Quarter: 2009Q3

REPORT INFORMATION
  Report Type: 
  Country: None (occurrence: None)
  Receive Date: 20090707
  Receipt Date: 20090629
  Transmission Date: 20100115
  Serious: Yes (Hospitalization, Other)
  Sender: FDA-Public Use
  Company Number: PHHY2009FR26424

PATIENT
  Sex: Male

DRUGS (9)
  1. EXELON [Suspect]
     Indication: DEMENTIA ALZHEIMER'S TYPE
     Dosage: UNK
     Route: 062
     Dates: start: 20060101, end: 20090106
  2. EQUANIL [Concomitant]
     Dosage: 3 DF DAILY
     Dates: start: 20060101
  3. SINTROM [Concomitant]
     Dosage: 0.5 DF, QD
  4. FUROSEMIDE [Concomitant]
     Dosage: 20 MG, QD
  5. LISINOPRIL [Concomitant]
     Dosage: 20 MG, QD
  6. TROSPIUM CHLORIDE [Concomitant]
     Dosage: 20 MG, QD
  7. NULYTELY [Concomitant]
  8. DOLIPRANE [Concomitant]
     Dosage: 3 DF DAILY
  9. ALENDRONATE SODIUM [Concomitant]
     Dosage: 70 MG, QW

REACTIONS (5)
  - ABNORMAL BEHAVIOUR [None]
  - AGGRESSION [None]
  - CIRCADIAN RHYTHM SLEEP DISORDER [None]
  - DISORIENTATION [None]
  - INCOHERENT [None]
